FAERS Safety Report 6635377-X (Version None)
Quarter: 2010Q1

REPORT INFORMATION
  Report Type: 
  Country: None (occurrence: None)
  Receive Date: 20100312
  Receipt Date: 20100312
  Transmission Date: 20100710
  Serious: Yes (Other)
  Sender: FDA-Public Use
  Company Number: None

PATIENT
  Age: 28 Year
  Sex: Female

DRUGS (1)
  1. EPIPEN [Suspect]
     Indication: ACCIDENT
     Dosage: ONE ADULT PEN
     Dates: start: 20100310, end: 20100310

REACTIONS (6)
  - CONTUSION [None]
  - FLUSHING [None]
  - MEDICATION ERROR [None]
  - TACHYCARDIA [None]
  - TREMOR [None]
  - VASOCONSTRICTION [None]
